FAERS Safety Report 6699920-7 (Version None)
Quarter: 2010Q2

REPORT INFORMATION
  Report Type: 
  Country: None (occurrence: None)
  Receive Date: 20100428
  Receipt Date: 20100426
  Transmission Date: 20101027
  Serious: Yes (Hospitalization)
  Sender: FDA-Public Use
  Company Number: ZA-SANOFI-AVENTIS-2010SA011113

PATIENT
  Age: 62 Year
  Sex: Female

DRUGS (7)
  1. TAXOTERE [Suspect]
     Route: 041
     Dates: start: 20091118, end: 20091118
  2. TAXOTERE [Suspect]
     Route: 041
     Dates: start: 20091209, end: 20091209
  3. TAXOTERE [Suspect]
     Route: 041
     Dates: start: 20100107, end: 20100107
  4. TAXOTERE [Suspect]
     Route: 041
     Dates: start: 20100203, end: 20100203
  5. KYTRIL [Concomitant]
     Indication: PROPHYLAXIS
     Route: 041
     Dates: start: 20091118, end: 20100203
  6. BETANOID [Concomitant]
     Indication: PROPHYLAXIS
     Route: 041
     Dates: start: 20091118, end: 20100203
  7. CIPRO [Concomitant]

REACTIONS (3)
  - ANAEMIA [None]
  - FATIGUE [None]
  - HAEMOPTYSIS [None]
